FAERS Safety Report 4721330-X (Version None)
Quarter: 2005Q3

REPORT INFORMATION
  Report Type: 
  Country: None (occurrence: None)
  Receive Date: 20050721
  Receipt Date: 20040628
  Transmission Date: 20060218
  Serious: Yes (Death, Hospitalization, Other)
  Sender: FDA-Public Use
  Company Number: US-BRISTOL-MYERS SQUIBB COMPANY-12626503

PATIENT
  Age: 53 Year
  Sex: Female

DRUGS (6)
  1. COUMADIN [Suspect]
     Indication: MYOCARDIAL INFARCTION
     Dosage: DURATION=5 WK + 1 DAY
     Route: 048
     Dates: start: 20040417, end: 20040501
  2. COUMADIN [Interacting]
     Indication: STENT PLACEMENT
     Dosage: DURATION=5 WK + 1 DAY
     Route: 048
     Dates: start: 20040417, end: 20040501
  3. PLAVIX [Interacting]
     Indication: MYOCARDIAL INFARCTION
     Dosage: DURATION=5 WK + 1 DAY
     Route: 048
     Dates: start: 20040417, end: 20040501
  4. PLAVIX [Interacting]
     Indication: STENT PLACEMENT
     Dosage: DURATION=5 WK + 1 DAY
     Route: 048
     Dates: start: 20040417, end: 20040501
  5. ASPIRIN [Interacting]
     Indication: MYOCARDIAL INFARCTION
     Dosage: DURATION=5 WK + 1 DAY
     Route: 048
     Dates: start: 20040417, end: 20040501
  6. ASPIRIN [Interacting]
     Indication: STENT PLACEMENT
     Dosage: DURATION=5 WK + 1 DAY
     Route: 048
     Dates: start: 20040417, end: 20040501

REACTIONS (4)
  - CEREBRAL HAEMORRHAGE [None]
  - DRUG INTERACTION [None]
  - HAEMORRHAGE [None]
  - PROTHROMBIN LEVEL DECREASED [None]
